FAERS Safety Report 20223229 (Version 2)
Quarter: 2022Q1

REPORT INFORMATION
  Report Type: Spontaneous
  Country: BE (occurrence: BE)
  Receive Date: 20211223
  Receipt Date: 20220107
  Transmission Date: 20220423
  Serious: Yes (Death, Other)
  Sender: FDA-Public Use
  Company Number: BE-TAKEDA-2021TUS080904

PATIENT
  Age: 71 Year
  Sex: Male

DRUGS (5)
  1. ADCETRIS [Suspect]
     Active Substance: BRENTUXIMAB VEDOTIN
     Indication: Anaplastic large-cell lymphoma
     Dosage: UNK
     Route: 065
     Dates: start: 202110, end: 20211206
  2. CYCLOPHOSPHAMIDE [Suspect]
     Active Substance: CYCLOPHOSPHAMIDE
     Indication: Anaplastic large-cell lymphoma
     Dosage: UNK
     Route: 065
     Dates: start: 202110, end: 20211206
  3. CYCLOPHOSPHAMIDE [Suspect]
     Active Substance: CYCLOPHOSPHAMIDE
     Dosage: UNK
     Route: 065
     Dates: start: 202110, end: 20211206
  4. DOXORUBICIN [Suspect]
     Active Substance: DOXORUBICIN
     Indication: Anaplastic large-cell lymphoma
     Dosage: UNK
     Route: 065
     Dates: start: 202110, end: 20211206
  5. PREDNISONE [Suspect]
     Active Substance: PREDNISONE
     Indication: Anaplastic large-cell lymphoma
     Dosage: UNK
     Route: 065
     Dates: start: 202110, end: 20211206

REACTIONS (2)
  - Haemophagocytic lymphohistiocytosis [Fatal]
  - Infection [Fatal]

NARRATIVE: CASE EVENT DATE: 20211206
